FAERS Safety Report 7689316-3 (Version None)
Quarter: 2011Q3

REPORT INFORMATION
  Report Type: 
  Country: None (occurrence: None)
  Receive Date: 20110817
  Receipt Date: 20110808
  Transmission Date: 20111222
  Serious: Yes (Other)
  Sender: FDA-Public Use
  Company Number: US-BAYER-201010626NA

PATIENT
  Age: 44 Year
  Sex: Female
  Weight: 99.091 kg

DRUGS (13)
  1. LIPITOR [Concomitant]
  2. TOPAMAX [Concomitant]
     Dosage: EVERY DAY
     Route: 048
  3. SPRING VALLEY [Concomitant]
     Dates: start: 20090101
  4. LYRICA [Concomitant]
  5. HYDROCODONE [Concomitant]
  6. ZITHROMYCAIN [Concomitant]
     Dosage: MULTIPLE TIMES
  7. FROVA [Concomitant]
  8. LIPITOR [Concomitant]
  9. YASMIN [Suspect]
     Indication: PREMENSTRUAL SYNDROME
     Route: 048
     Dates: start: 20020101, end: 20080101
  10. SARAFEM [Concomitant]
     Dosage: EVERY DAY
  11. NEURONTIN [Concomitant]
     Dosage: 300 MG ONCE A DAY AND 600 MG AT BEDTIME
  12. LIPITOR [Concomitant]
  13. LIPITOR [Concomitant]

REACTIONS (13)
  - CONFUSIONAL STATE [None]
  - ABASIA [None]
  - CEREBROVASCULAR ACCIDENT [None]
  - MOTOR DYSFUNCTION [None]
  - SPEECH DISORDER [None]
  - VISION BLURRED [None]
  - HYPOAESTHESIA [None]
  - DIZZINESS [None]
  - DYSARTHRIA [None]
  - PARAESTHESIA [None]
  - HEADACHE [None]
  - MUSCULAR WEAKNESS [None]
  - APHASIA [None]
